FAERS Safety Report 21920016 (Version 4)
Quarter: 2023Q1

REPORT INFORMATION
  Report Type: Report from Study
  Country: TW (occurrence: None)
  Receive Date: 20230127
  Receipt Date: 20230310
  Transmission Date: 20230418
  Serious: Yes (Death, Hospitalization)
  Sender: FDA-Public Use
  Company Number: TW-ROCHE-3272998

PATIENT
  Age: 69 Year
  Sex: Male
  Weight: 52.2 kg

DRUGS (19)
  1. ATEZOLIZUMAB [Suspect]
     Active Substance: ATEZOLIZUMAB
     Indication: Hepatocellular carcinoma
     Dosage: ON 06/JAN/2023 LAST DOSE OF ATEZOLIZUMAB ADMIN PRIOR AE IS 1200 MG
     Route: 041
     Dates: start: 20210305
  2. BEVACIZUMAB [Suspect]
     Active Substance: BEVACIZUMAB
     Indication: Hepatocellular carcinoma
     Dosage: ON 06/JAN/2023 LAST DOSE OF BEVACIZUMAB ADMIN PRIOR AE IS  757.5 MG
     Route: 042
     Dates: start: 20210305
  3. TOCILIZUMAB [Suspect]
     Active Substance: TOCILIZUMAB
     Indication: Hepatocellular carcinoma
     Dosage: ON 06/JAN/2023 LAST DOSE OF TOCILIZUMAB ADMIN PRIOR AE IS 417.6 MG
     Route: 042
     Dates: start: 20210305
  4. BISOPROLOL FUMARATE [Concomitant]
     Active Substance: BISOPROLOL FUMARATE
     Indication: Hypertension
     Route: 048
     Dates: end: 20230121
  5. METOCLOPRAMIDE HYDROCHLORIDE [Concomitant]
     Active Substance: METOCLOPRAMIDE HYDROCHLORIDE
     Indication: Oesophagitis
     Route: 048
     Dates: start: 20210528
  6. METOCLOPRAMIDE HYDROCHLORIDE [Concomitant]
     Active Substance: METOCLOPRAMIDE HYDROCHLORIDE
     Indication: Abdominal pain
     Route: 042
     Dates: start: 20230114, end: 20230114
  7. OLMESARTAN MEDOXOMIL [Concomitant]
     Active Substance: OLMESARTAN MEDOXOMIL
     Indication: Hypertension
     Route: 048
     Dates: start: 20211203
  8. DIMETHICONE [Concomitant]
     Active Substance: DIMETHICONE
     Dates: start: 20211203
  9. AMLODIPINE BESYLATE [Concomitant]
     Active Substance: AMLODIPINE BESYLATE
     Indication: Hypertension
     Dates: start: 20220816
  10. DIPHENHYDRAMINE HYDROCHLORIDE [Concomitant]
     Active Substance: DIPHENHYDRAMINE HYDROCHLORIDE
     Dates: start: 20221216
  11. MAGNESIUM OXIDE [Concomitant]
     Active Substance: MAGNESIUM OXIDE
     Indication: Abdominal pain
     Dates: start: 20230115, end: 20230120
  12. MOSAPRIDE CITRATE DIHYDRATE [Concomitant]
     Active Substance: MOSAPRIDE CITRATE DIHYDRATE
     Indication: Abdominal pain
     Dates: start: 20230115, end: 20230120
  13. PANCRELIPASE [Concomitant]
     Active Substance: PANCRELIPASE
     Indication: Abdominal pain
     Dates: start: 20230115
  14. ACETAMINOPHEN [Concomitant]
     Active Substance: ACETAMINOPHEN
     Indication: Abdominal pain
     Dates: start: 20230116
  15. ACETAMINOPHEN [Concomitant]
     Active Substance: ACETAMINOPHEN
     Indication: Bacteraemia
     Route: 048
     Dates: start: 20230125, end: 20230125
  16. OXACILLIN SODIUM [Concomitant]
     Active Substance: OXACILLIN SODIUM
     Indication: Bacteraemia
     Route: 042
     Dates: start: 20230124, end: 20230125
  17. BISACODYL [Concomitant]
     Active Substance: BISACODYL
     Indication: Constipation
     Dosage: PILL
     Dates: start: 20230123, end: 20230123
  18. CEFTRIAXONE SODIUM [Concomitant]
     Active Substance: CEFTRIAXONE SODIUM
     Indication: Bacteraemia
     Route: 042
     Dates: start: 20230125, end: 20230126
  19. CEFTRIAXONE SODIUM [Concomitant]
     Active Substance: CEFTRIAXONE SODIUM
     Indication: Endocarditis
     Route: 042
     Dates: start: 20230127

REACTIONS (1)
  - Acute myocardial infarction [Fatal]

NARRATIVE: CASE EVENT DATE: 20230121
